FAERS Safety Report 9594120 (Version 1)
Quarter: 2013Q3

REPORT INFORMATION
  Report Type: Spontaneous
  Country: US (occurrence: None)
  Receive Date: 20130930
  Receipt Date: 20130930
  Transmission Date: 20140515
  Serious: No
  Sender: FDA-Public Use
  Company Number: 1000047758

PATIENT
  Age: 77 Year
  Sex: Female

DRUGS (14)
  1. LINZESS (LINACLOTIDE) (290 MICROGRAM, CAPSULES) [Suspect]
     Indication: CONSTIPATION
     Dosage: 290 MCG (290 MCG, 1 IN 1 D), ORAL
     Route: 048
     Dates: start: 20130806
  2. MIRALAX (POLYETHYLENE GLYCOL) (POLYETHYLENE GLYCOL) [Concomitant]
  3. LASIX (FUROSEMIDE) (FUROSEMIDE) [Concomitant]
  4. SYNTHROID (LEVOTHYROXINE SODIUM) (LEVOTHYROXINE SODIUM) [Concomitant]
  5. PANTOPRAZOLE (PANTOPRAZOLE) (PANTOPRAZOLE) [Concomitant]
  6. COZAAR (LOSARTAN POTASSIUM) (LOSARTAN POTASSIUM) [Concomitant]
  7. MULTAQ (DRONEDARONE HYDROCHLORIDE) (DRONEDARONE HYDROCHLORIDE) [Concomitant]
  8. NORVASC (AMLODIPINE BESILATE) (AMLODIPINE BESILATE) [Concomitant]
  9. TOPROL (METOPROLOL SUCCINATE) (METOPROLOL SUCCINATE) [Concomitant]
  10. ZOCOR (SIMVASTATIN) (SIMVASTATIN) [Concomitant]
  11. WARFARIN (WARFARIN) (WARFARIN) [Concomitant]
  12. CITRUCEL (METHYLCELLULOSE) (METHYLCELLULOSE) [Concomitant]
  13. VITAMIN D (VITAMIN D) (VITAMIN D) [Concomitant]
  14. TYLENOL (ACETAMINOPHEN) (ACETAMINOPHEN) [Concomitant]

REACTIONS (1)
  - Diarrhoea [None]
